FAERS Safety Report 8189724-0 (Version None)
Quarter: 2012Q1

REPORT INFORMATION
  Report Type: 
  Country: None (occurrence: None)
  Receive Date: 20120221
  Receipt Date: 20120118
  Transmission Date: 20120608
  Serious: No
  Sender: FDA-Public Use
  Company Number: 1000022607

PATIENT
  Age: 62 Year
  Sex: Female

DRUGS (1)
  1. VIIBRYD [Suspect]
     Indication: DEPRESSION
     Dosage: 10 MG (10 MG,1 IN 1 D),ORAL
     Route: 048
     Dates: start: 20110801, end: 20110801

REACTIONS (7)
  - GAIT DISTURBANCE [None]
  - ANXIETY [None]
  - HEADACHE [None]
  - EYE PAIN [None]
  - DIARRHOEA [None]
  - ABDOMINAL PAIN [None]
  - INSOMNIA [None]
